FAERS Safety Report 6332988-6 (Version None)
Quarter: 2009Q3

REPORT INFORMATION
  Report Type: 
  Country: None (occurrence: None)
  Receive Date: 20090828
  Receipt Date: 20090819
  Transmission Date: 20100115
  Serious: Yes (Disabling)
  Sender: FDA-Public Use
  Company Number: NL-AMGEN-US344899

PATIENT
  Age: 70 Year
  Sex: Female
  Weight: 108 kg

DRUGS (7)
  1. ENBREL [Suspect]
     Indication: PSORIASIS
     Route: 058
     Dates: start: 20080215
  2. FEMARA [Concomitant]
  3. SULINDAC [Concomitant]
  4. PANTOZOL [Concomitant]
  5. VERAPAMIL [Concomitant]
  6. COAPROVEL [Concomitant]
     Dosage: 300/12.5 MG 1 TIME A DAY
  7. FUROSEMIDE [Concomitant]

REACTIONS (1)
  - MACULAR DEGENERATION [None]
